FAERS Safety Report 20887904 (Version 1)
Quarter: 2022Q2

REPORT INFORMATION
  Report Type: Spontaneous
  Country: DE (occurrence: DE)
  Receive Date: 20220528
  Receipt Date: 20220528
  Transmission Date: 20220720
  Serious: Yes (Death, Other)
  Sender: FDA-Public Use
  Company Number: DE-DCGMA-22198090

PATIENT
  Age: 62 Year
  Sex: Male

DRUGS (5)
  1. DOCETAXEL [Suspect]
     Active Substance: DOCETAXEL
     Indication: Prostate cancer
     Dosage: 153.7 MG
     Dates: start: 20220112, end: 20220202
  2. AMLODIPINE [Concomitant]
     Active Substance: AMLODIPINE BESYLATE
  3. RAMIPRIL [Concomitant]
     Active Substance: RAMIPRIL
  4. ZYTIGA [Concomitant]
     Active Substance: ABIRATERONE ACETATE
  5. ALLOPURINOL [Concomitant]
     Active Substance: ALLOPURINOL

REACTIONS (5)
  - Thrombosis [Fatal]
  - Pulmonary embolism [Fatal]
  - Pneumonitis [Fatal]
  - Pulmonary fibrosis [Fatal]
  - Atypical pneumonia [Fatal]
